FAERS Safety Report 5406181-5 (Version None)
Quarter: 2007Q3

REPORT INFORMATION
  Report Type: 
  Country: None (occurrence: None)
  Receive Date: 20070802
  Receipt Date: 20070802
  Transmission Date: 20080115
  Serious: Yes (Hospitalization)
  Sender: FDA-Public Use
  Company Number: None

PATIENT
  Sex: Female
  Weight: 166.7 kg

DRUGS (13)
  1. NAFCILLIN SODIUM [Suspect]
     Indication: STAPHYLOCOCCAL INFECTION
     Dosage: 2G/100 ML Q4HR IV
     Route: 042
     Dates: start: 20070211, end: 20070213
  2. ACETAMINOPHEN [Concomitant]
  3. ALBUTEROL SULFATE AND IPRATROPIUM BROMIDE [Concomitant]
  4. ALLOPURINOL [Concomitant]
  5. ATENOLOL [Concomitant]
  6. CLONIDINE [Concomitant]
  7. FUROSEMIDE [Concomitant]
  8. GABAPENTIN [Concomitant]
  9. LINEZOLID [Concomitant]
  10. LISINOPRIL [Concomitant]
  11. PANTOPRAZOLE SODIUM [Concomitant]
  12. VANCOMYCIN [Concomitant]
  13. PREMIX [Concomitant]

REACTIONS (1)
  - RENAL FAILURE ACUTE [None]
